FAERS Safety Report 10282783 (Version 1)
Quarter: 2014Q3

REPORT INFORMATION
  Report Type: Report from Study
  Country: GB (occurrence: GB)
  Receive Date: 20140708
  Receipt Date: 20140708
  Transmission Date: 20150326
  Serious: Yes (Hospitalization, Disabling)
  Sender: FDA-Public Use
  Company Number: GB-ACCORD-024518

PATIENT
  Age: 54 Year
  Sex: Female

DRUGS (10)
  1. FLUCLOXACILLIN [Concomitant]
     Active Substance: FLUCLOXACILLIN
  2. ATORVASTATIN [Concomitant]
     Active Substance: ATORVASTATIN
  3. MIRTAZAPINE. [Concomitant]
     Active Substance: MIRTAZAPINE
  4. PIPERACILLIN SODIUM/TAZOBACTAM SODIUM [Concomitant]
  5. PACLITAXEL/PACLITAXEL LIPOSOME [Suspect]
     Active Substance: PACLITAXEL
     Indication: OVARIAN EPITHELIAL CANCER
     Dosage: UNKNOWN GIVEN AS PART OF ICON 8 TRIAL
     Route: 042
     Dates: start: 20140422, end: 20140610
  6. HEPARIN [Concomitant]
     Active Substance: HEPARIN SODIUM
  7. DALTEPARIN [Concomitant]
     Active Substance: DALTEPARIN
  8. LANSOPRAZOLE. [Concomitant]
     Active Substance: LANSOPRAZOLE
  9. DOMPERIDONE [Concomitant]
     Active Substance: DOMPERIDONE
  10. CARBOPLATIN. [Suspect]
     Active Substance: CARBOPLATIN
     Indication: OVARIAN EPITHELIAL CANCER
     Dosage: UNKNOWN GIVEN AS PART OF ICON 8 TRIAL
     Route: 042
     Dates: start: 20140422, end: 20140610

REACTIONS (2)
  - Hidradenitis [Recovering/Resolving]
  - Pain [Unknown]

NARRATIVE: CASE EVENT DATE: 20140612
